FAERS Safety Report 23281532 (Version 1)
Quarter: 2023Q4

REPORT INFORMATION
  Report Type: Spontaneous
  Country: SI (occurrence: SI)
  Receive Date: 20231211
  Receipt Date: 20231211
  Transmission Date: 20240110
  Serious: Yes (Life-Threatening, Hospitalization)
  Sender: FDA-Public Use
  Company Number: SI-MACLEODS PHARMACEUTICALS US LTD-MAC2023044660

PATIENT

DRUGS (3)
  1. QUETIAPINE [Suspect]
     Active Substance: QUETIAPINE
     Indication: Product used for unknown indication
     Dosage: 20 DOSAGE FORM, SINGLE (6000 MG)
     Route: 065
  2. CITALOPRAM [Suspect]
     Active Substance: CITALOPRAM HYDROBROMIDE
     Indication: Product used for unknown indication
     Dosage: 400 MILLIGRAM, SINGLE
     Route: 065
  3. BROMAZEPAM [Suspect]
     Active Substance: BROMAZEPAM
     Indication: Product used for unknown indication
     Dosage: 45 MILLIGRAM, SINGLE
     Route: 065

REACTIONS (6)
  - Ventricular tachycardia [Recovered/Resolved]
  - Suicide attempt [Recovered/Resolved]
  - Bundle branch block right [Recovered/Resolved]
  - Status epilepticus [Recovered/Resolved]
  - Toxicity to various agents [Recovered/Resolved]
  - Electrocardiogram QT prolonged [Recovered/Resolved]
